FAERS Safety Report 23040629 (Version 2)
Quarter: 2024Q3

REPORT INFORMATION
  Report Type: Spontaneous
  Country: RU (occurrence: RU)
  Receive Date: 20231006
  Receipt Date: 20240708
  Transmission Date: 20241016
  Serious: Yes (Hospitalization, Other)
  Sender: ROCHE
  Company Number: RU-ROCHE-3432435

PATIENT
  Sex: Female
  Weight: 48.0 kg

DRUGS (32)
  1. TRASTUZUMAB [Suspect]
     Active Substance: TRASTUZUMAB
     Indication: Breast cancer
     Route: 041
     Dates: start: 20220907
  2. TRASTUZUMAB [Suspect]
     Active Substance: TRASTUZUMAB
     Route: 041
     Dates: start: 20220929
  3. TRASTUZUMAB [Suspect]
     Active Substance: TRASTUZUMAB
     Route: 041
     Dates: start: 20221020
  4. TRASTUZUMAB [Suspect]
     Active Substance: TRASTUZUMAB
     Route: 041
     Dates: start: 20221118
  5. TRASTUZUMAB [Suspect]
     Active Substance: TRASTUZUMAB
     Route: 041
     Dates: start: 20221209
  6. TRASTUZUMAB [Suspect]
     Active Substance: TRASTUZUMAB
     Route: 041
     Dates: start: 20240130
  7. TRASTUZUMAB [Suspect]
     Active Substance: TRASTUZUMAB
     Dosage: 6 MG/KG - 384 MG IV DRIP ON DAY 1;
     Route: 041
  8. TRASTUZUMAB [Suspect]
     Active Substance: TRASTUZUMAB
     Dosage: ON 22/NOV/2023, 13/DEC/2023, 05/JAN/2023, 30/JAN/2024 SUBSEQUENT CHEMOTHERAPIES WERE GIVEN.
     Route: 042
     Dates: start: 20231009
  9. PERTUZUMAB [Suspect]
     Active Substance: PERTUZUMAB
     Indication: Breast cancer
     Route: 041
     Dates: start: 20220907
  10. PERTUZUMAB [Suspect]
     Active Substance: PERTUZUMAB
     Route: 041
     Dates: start: 20220929
  11. PERTUZUMAB [Suspect]
     Active Substance: PERTUZUMAB
     Route: 041
     Dates: start: 20221020
  12. PERTUZUMAB [Suspect]
     Active Substance: PERTUZUMAB
     Route: 041
     Dates: start: 20221118
  13. PERTUZUMAB [Suspect]
     Active Substance: PERTUZUMAB
     Route: 041
     Dates: start: 20221209
  14. PERTUZUMAB [Suspect]
     Active Substance: PERTUZUMAB
     Route: 041
  15. CARBOPLATIN [Suspect]
     Active Substance: CARBOPLATIN
     Indication: Breast cancer
     Route: 041
     Dates: start: 20220907
  16. CARBOPLATIN [Suspect]
     Active Substance: CARBOPLATIN
     Route: 041
     Dates: start: 20220929
  17. CARBOPLATIN [Suspect]
     Active Substance: CARBOPLATIN
     Route: 041
     Dates: start: 20221020
  18. CARBOPLATIN [Suspect]
     Active Substance: CARBOPLATIN
     Route: 041
     Dates: start: 20221118
  19. CARBOPLATIN [Suspect]
     Active Substance: CARBOPLATIN
     Route: 041
     Dates: start: 20221209
  20. CARBOPLATIN [Suspect]
     Active Substance: CARBOPLATIN
     Dosage: AUC=4 - 252 MG IV DRIP ON DAY 1.
     Route: 041
  21. DOCETAXEL [Suspect]
     Active Substance: DOCETAXEL\DOCETAXEL ANHYDROUS
     Indication: Breast cancer
     Route: 041
     Dates: start: 20220907
  22. DOCETAXEL [Suspect]
     Active Substance: DOCETAXEL\DOCETAXEL ANHYDROUS
     Route: 041
     Dates: start: 20220929
  23. DOCETAXEL [Suspect]
     Active Substance: DOCETAXEL\DOCETAXEL ANHYDROUS
     Route: 041
     Dates: start: 20221020
  24. DOCETAXEL [Suspect]
     Active Substance: DOCETAXEL\DOCETAXEL ANHYDROUS
     Route: 041
     Dates: start: 20221118
  25. DOCETAXEL [Suspect]
     Active Substance: DOCETAXEL\DOCETAXEL ANHYDROUS
     Route: 041
     Dates: start: 20221209
  26. DOCETAXEL [Suspect]
     Active Substance: DOCETAXEL\DOCETAXEL ANHYDROUS
     Route: 041
     Dates: start: 20240130
  27. DOCETAXEL [Suspect]
     Active Substance: DOCETAXEL\DOCETAXEL ANHYDROUS
     Dosage: 50 MG/M2 - 81.5 MG, IV DRIP, ON DAY 1;
     Route: 041
  28. DOCETAXEL [Suspect]
     Active Substance: DOCETAXEL\DOCETAXEL ANHYDROUS
     Dosage: ON 22/NOV/2023, 13/DEC/2023, 05/JAN/2023, 30/JAN/2024 SUBSEQUENT CHEMOTHERAPIES WERE GIVEN.
     Route: 042
     Dates: start: 20231009
  29. SODIUM CHLORIDE [Concomitant]
     Active Substance: SODIUM CHLORIDE
     Dates: start: 20220907
  30. SODIUM CHLORIDE [Concomitant]
     Active Substance: SODIUM CHLORIDE
     Dates: start: 20220907
  31. FILGRASTIM [Concomitant]
     Active Substance: FILGRASTIM
     Route: 058
     Dates: start: 20220908
  32. FILGRASTIM [Concomitant]
     Active Substance: FILGRASTIM
     Route: 058

REACTIONS (7)
  - Sinus bradycardia [Unknown]
  - Pulmonary fibrosis [Unknown]
  - Cholecystitis chronic [Unknown]
  - Metastases to lung [Unknown]
  - Gallbladder disorder [Unknown]
  - Uterine leiomyoma [Unknown]
  - Sinus node dysfunction [Unknown]
